FAERS Safety Report 8338459-X (Version None)
Quarter: 2012Q2

REPORT INFORMATION
  Report Type: 
  Country: None (occurrence: None)
  Receive Date: 20120504
  Receipt Date: 20120430
  Transmission Date: 20120825
  Serious: Yes (Other)
  Sender: FDA-Public Use
  Company Number: US-PFIZER INC-2012035959

PATIENT
  Sex: Male

DRUGS (1)
  1. ZOLOFT [Suspect]
     Dosage: UNK

REACTIONS (5)
  - MENTAL DISORDER [None]
  - MYOCARDIAL INFARCTION [None]
  - DRUG DEPENDENCE [None]
  - ESSENTIAL HYPERTENSION [None]
  - AGGRESSION [None]
